FAERS Safety Report 9547680 (Version 1)
Quarter: 2013Q2

REPORT INFORMATION
  Report Type: Spontaneous
  Country: US (occurrence: None)
  Receive Date: 20130606
  Receipt Date: 20130606
  Transmission Date: 20140414
  Serious: Yes (Hospitalization)
  Sender: FDA-Public Use
  Company Number: 163-POMAL-13040761

PATIENT
  Age: 59 Year
  Sex: Female

DRUGS (9)
  1. POMALYST [Suspect]
     Indication: PLASMA CELL MYELOMA
     Dosage: 3 MG, 21 IN 21 D, PO?3/12/13-ON HOLD
     Route: 048
     Dates: start: 20130312
  2. ACETAMINOPHEN ER (PARACETAMOL) [Concomitant]
  3. ACYCLOVIR (ACICLOVIR) (ACICLOVIR) [Concomitant]
  4. BACLOFEN (BACLOFEN) [Concomitant]
  5. DEXAMETHASONE (DEXAMETHASONE) [Concomitant]
  6. FISH OIL (FISH OIL) [Concomitant]
  7. FOLIC ACID (FOLIC ACID) [Concomitant]
  8. LORAZEPAM (LORAZEPAM) [Concomitant]
  9. MAGNESIUM CITRATE (MAGNESIUM CITRATE) [Concomitant]

REACTIONS (2)
  - Neutropenia [None]
  - White blood cell count decreased [None]
